FAERS Safety Report 23529418 (Version 1)
Quarter: 2024Q1

REPORT INFORMATION
  Report Type: Spontaneous
  Country: IQ (occurrence: None)
  Receive Date: 20240216
  Receipt Date: 20240216
  Transmission Date: 20240409
  Serious: Yes (Other)
  Sender: FDA-Public Use
  Company Number: IQ-ROCHE-3504661

PATIENT
  Sex: Female

DRUGS (1)
  1. OCREVUS [Suspect]
     Active Substance: OCRELIZUMAB
     Indication: Primary progressive multiple sclerosis
     Dosage: 300 MG AT 14 DAYS AND THEN 600 MG EVERY 6 MONTHS
     Route: 042
     Dates: start: 202302, end: 202302

REACTIONS (1)
  - Disease progression [Not Recovered/Not Resolved]
